FAERS Safety Report 9229070 (Version 1)
Quarter: 2013Q2

REPORT INFORMATION
  Report Type: Spontaneous
  Country: PE (occurrence: PE)
  Receive Date: 20130412
  Receipt Date: 20130412
  Transmission Date: 20140414
  Serious: Yes (Death)
  Sender: FDA-Public Use
  Company Number: PE-PFIZER INC-2013116468

PATIENT
  Age: 80 Year
  Sex: Female

DRUGS (2)
  1. NORVASC [Suspect]
     Route: 048
  2. ACCUPRIL [Suspect]
     Route: 048

REACTIONS (1)
  - Death [Fatal]
